FAERS Safety Report 8882471 (Version 5)
Quarter: 2016Q4

REPORT INFORMATION
  Report Type: Spontaneous
  Country: US (occurrence: US)
  Receive Date: 20121102
  Receipt Date: 20161031
  Transmission Date: 20170207
  Serious: Yes (Hospitalization, Other)
  Sender: FDA-Public Use
  Company Number: US-009507513-1210USA010420

PATIENT
  Sex: Female

DRUGS (5)
  1. FOSAMAX [Suspect]
     Active Substance: ALENDRONATE SODIUM
     Indication: BREAST CANCER
     Dosage: 70 MG, UNKNOWN
     Route: 048
     Dates: start: 20050125, end: 201209
  2. FOSAMAX [Suspect]
     Active Substance: ALENDRONATE SODIUM
     Indication: OSTEOPOROSIS
  3. ALENDRONATE SODIUM. [Suspect]
     Active Substance: ALENDRONATE SODIUM
     Indication: OSTEOPOROSIS
  4. ALENDRONATE SODIUM. [Suspect]
     Active Substance: ALENDRONATE SODIUM
     Indication: BREAST CANCER
     Dosage: UNK UNK, UNKNOWN
     Route: 048
     Dates: start: 2003
  5. ALENDRONATE SODIUM. [Suspect]
     Active Substance: ALENDRONATE SODIUM
     Indication: BREAST CANCER
     Dosage: 70 MG, UNKNOWN
     Route: 048
     Dates: start: 20080626, end: 201008

REACTIONS (37)
  - Knee arthroplasty [Unknown]
  - Hypertension [Unknown]
  - Device failure [Unknown]
  - Incisional drainage [Unknown]
  - Effusion [Unknown]
  - Sinus tachycardia [Unknown]
  - Pain [Not Recovered/Not Resolved]
  - Off label use [Unknown]
  - Tooth extraction [Unknown]
  - Anxiety [Unknown]
  - Knee arthroplasty [Unknown]
  - Seroma [Recovering/Resolving]
  - Post procedural haemorrhage [Unknown]
  - Osteopenia [Unknown]
  - Bronchitis [Unknown]
  - Pain of skin [Unknown]
  - Gallbladder operation [Unknown]
  - Nasal operation [Unknown]
  - Pneumonia [Unknown]
  - Dental caries [Unknown]
  - Drug ineffective [Unknown]
  - Femur fracture [Unknown]
  - Hip arthroplasty [Unknown]
  - Low turnover osteopathy [Unknown]
  - Medical device removal [Unknown]
  - Osteoarthritis [Unknown]
  - Cataract operation [Unknown]
  - Gastric disorder [Unknown]
  - Pyrexia [Unknown]
  - Depression [Unknown]
  - Haematoma [Recovering/Resolving]
  - Urinary tract infection [Unknown]
  - Intramedullary rod insertion [Unknown]
  - Removal of internal fixation [Unknown]
  - Fracture delayed union [Unknown]
  - Bursitis [Unknown]
  - Osteoarthritis [Unknown]

NARRATIVE: CASE EVENT DATE: 2003
